FAERS Safety Report 7141161-3 (Version None)
Quarter: 2010Q4

REPORT INFORMATION
  Report Type: 
  Country: None (occurrence: None)
  Receive Date: 20101202
  Receipt Date: 20101202
  Transmission Date: 20110411
  Serious: Yes (Other)
  Sender: FDA-Public Use
  Company Number: None

PATIENT
  Sex: Female
  Weight: 14.0615 kg

DRUGS (4)
  1. PRADAXA [Suspect]
     Indication: ANTICOAGULANT THERAPY
     Dosage: 150MG 2-MORN/EVE
     Dates: start: 20101105, end: 20101116
  2. AMIODIPINE [Concomitant]
  3. THYROID [Concomitant]
  4. DIGOXIN [Concomitant]

REACTIONS (5)
  - CONFUSIONAL STATE [None]
  - DISORIENTATION [None]
  - HAEMORRHAGE [None]
  - MENTAL DISORDER [None]
  - MENTAL IMPAIRMENT [None]
